FAERS Safety Report 9007220 (Version 2)
Quarter: 2013Q1

REPORT INFORMATION
  Report Type: Report from Study
  Country: DE (occurrence: DE)
  Receive Date: 20130110
  Receipt Date: 20130307
  Transmission Date: 20140127
  Serious: Yes (Hospitalization)
  Sender: FDA-Public Use
  Company Number: DE-BRISTOL-MYERS SQUIBB COMPANY-17272949

PATIENT
  Age: 72 Year
  Sex: Female

DRUGS (3)
  1. CETUXIMAB [Suspect]
     Indication: OESOPHAGEAL CARCINOMA
     Route: 042
     Dates: start: 20121218
  2. CISPLATIN FOR INJ [Suspect]
     Indication: OESOPHAGEAL CARCINOMA
     Route: 042
     Dates: start: 20121218
  3. DOCETAXEL [Suspect]
     Indication: OESOPHAGEAL CARCINOMA
     Route: 042
     Dates: start: 20121218

REACTIONS (2)
  - Stomatitis [Recovered/Resolved]
  - Pharyngitis [Recovered/Resolved]
